FAERS Safety Report 7084554-5 (Version None)
Quarter: 2010Q4

REPORT INFORMATION
  Report Type: 
  Country: None (occurrence: None)
  Receive Date: 20101104
  Receipt Date: 20101030
  Transmission Date: 20110411
  Serious: Yes (Other)
  Sender: FDA-Public Use
  Company Number: US-PFIZER INC-2010138417

PATIENT
  Sex: Male
  Weight: 87.982 kg

DRUGS (10)
  1. LIPITOR [Suspect]
     Indication: BLOOD CHOLESTEROL INCREASED
     Dosage: 10 MG, DAILY
     Route: 048
     Dates: start: 20050101
  2. METFORMIN [Concomitant]
     Dosage: 1000 MG, 2X/DAY
  3. VALSARTAN [Concomitant]
     Dosage: 80 MG, DAILY
  4. SITAGLIPTIN [Concomitant]
     Dosage: 100 MG, DAILY
  5. VITAMIN D [Concomitant]
     Dosage: 50000 UNITS, WEEKLY
  6. LANSOPRAZOLE [Concomitant]
     Dosage: 30 MG, DAILY
  7. ACTOS [Concomitant]
     Dosage: 45 MG, DAILY
  8. GLIMEPIRIDE [Concomitant]
     Dosage: 1 MG, DAILY
  9. SAW PALMETTO [Concomitant]
     Dosage: 450 MG, 3X/DAY
  10. MULTIVIT [Concomitant]
     Dosage: UNK

REACTIONS (4)
  - DIARRHOEA [None]
  - NAUSEA [None]
  - PRODUCT TASTE ABNORMAL [None]
  - WHITE BLOOD CELL DISORDER [None]
